FAERS Safety Report 8594458-4 (Version None)
Quarter: 2012Q3

REPORT INFORMATION
  Report Type: 
  Country: None (occurrence: None)
  Receive Date: 20120815
  Receipt Date: 20120806
  Transmission Date: 20120928
  Serious: Yes (Other)
  Sender: FDA-Public Use
  Company Number: US-RB-043297-12

PATIENT
  Age: 38 Year
  Sex: Female

DRUGS (2)
  1. MUCINEX [Suspect]
     Indication: RESPIRATORY TRACT CONGESTION
     Route: 048
     Dates: start: 20120731
  2. AMOXICILLIN [Concomitant]
     Indication: SINUSITIS

REACTIONS (2)
  - LIP SWELLING [None]
  - THROAT TIGHTNESS [None]
